FAERS Safety Report 13300338 (Version 1)
Quarter: 2017Q1

REPORT INFORMATION
  Report Type: Spontaneous
  Country: CN (occurrence: CN)
  Receive Date: 20170307
  Receipt Date: 20170307
  Transmission Date: 20170428
  Serious: Yes (Hospitalization)
  Sender: FDA-Public Use
  Company Number: CN-ROCHE-1901294

PATIENT
  Age: 5 Year
  Sex: Female
  Weight: 18 kg

DRUGS (2)
  1. ROCEPHIN [Suspect]
     Active Substance: CEFTRIAXONE SODIUM
     Indication: TONSILLITIS
     Route: 041
     Dates: start: 20161113, end: 20161113
  2. SODIUM CHLORIDE. [Concomitant]
     Active Substance: SODIUM CHLORIDE
     Dosage: AS MENSTRUUM
     Route: 041
     Dates: start: 20161113, end: 20161113

REACTIONS (3)
  - Tic [Unknown]
  - Altered state of consciousness [Unknown]
  - Cyanosis [Unknown]

NARRATIVE: CASE EVENT DATE: 20161113
